FAERS Safety Report 12191185 (Version 1)
Quarter: 2016Q1

REPORT INFORMATION
  Report Type: Spontaneous
  Country: US (occurrence: US)
  Receive Date: 20160318
  Receipt Date: 20160318
  Transmission Date: 20160526
  Serious: No
  Sender: FDA-Public Use
  Company Number: US-BAYER-2016-019116

PATIENT
  Age: 89 Year
  Sex: Female

DRUGS (2)
  1. ADEMPAS [Suspect]
     Active Substance: RIOCIGUAT
     Indication: PULMONARY HYPERTENSION
  2. ADEMPAS [Suspect]
     Active Substance: RIOCIGUAT
     Indication: SCLERODERMA
     Dosage: UNK
     Dates: start: 20151226, end: 20160106

REACTIONS (3)
  - Oedema [Recovered/Resolved]
  - Vertigo [Recovered/Resolved]
  - Headache [Recovered/Resolved]
